FAERS Safety Report 7847616-8 (Version None)
Quarter: 2011Q4

REPORT INFORMATION
  Report Type: 
  Country: None (occurrence: None)
  Receive Date: 20111025
  Receipt Date: 20111024
  Transmission Date: 20120403
  Serious: Yes (Hospitalization)
  Sender: FDA-Public Use
  Company Number: DE-AMGEN-DEUSP2011052381

PATIENT
  Age: 80 Year
  Sex: Female

DRUGS (1)
  1. NPLATE [Suspect]
     Indication: THROMBOCYTOPENIA

REACTIONS (5)
  - SPLENOMEGALY [None]
  - ASCITES [None]
  - BONE CYST [None]
  - PORTAL VEIN THROMBOSIS [None]
  - LUNG INFILTRATION [None]
